FAERS Safety Report 6807565-0 (Version None)
Quarter: 2010Q2

REPORT INFORMATION
  Report Type: 
  Country: None (occurrence: None)
  Receive Date: 20100629
  Receipt Date: 20081117
  Transmission Date: 20101027
  Serious: No
  Sender: FDA-Public Use
  Company Number: US-PFIZER INC-2008096452

PATIENT
  Age: 6 Year
  Sex: Male

DRUGS (2)
  1. ZYVOX [Suspect]
     Dates: start: 20081111
  2. ZITHROMAX [Concomitant]

REACTIONS (1)
  - PRODUCT QUALITY ISSUE [None]
